FAERS Safety Report 21987180 (Version 2)
Quarter: 2023Q1

REPORT INFORMATION
  Report Type: Report from Study
  Country: JP (occurrence: JP)
  Receive Date: 20230213
  Receipt Date: 20230330
  Transmission Date: 20230418
  Serious: No
  Sender: FDA-Public Use
  Company Number: JP-SA-2022SA393244

PATIENT
  Age: 40 Year
  Sex: Female

DRUGS (3)
  1. ELIGLUSTAT [Suspect]
     Active Substance: ELIGLUSTAT
     Indication: Gaucher^s disease
     Dosage: 100 MG, BID
     Route: 048
     Dates: start: 20210104, end: 20220930
  2. ZOPICLONE [Concomitant]
     Active Substance: ZOPICLONE
     Indication: Insomnia
     Route: 048
  3. HERBALS [Concomitant]
     Active Substance: HERBALS
     Indication: Menstruation irregular
     Route: 048

REACTIONS (1)
  - No adverse event [Unknown]
